FAERS Safety Report 7222235-5 (Version None)
Quarter: 2011Q1

REPORT INFORMATION
  Report Type: 
  Country: None (occurrence: None)
  Receive Date: 20110103
  Receipt Date: 20101217
  Transmission Date: 20110831
  Serious: Yes (Disabling, Other)
  Sender: FDA-Public Use
  Company Number: 1000017922

PATIENT
  Age: 78 Year
  Sex: Female

DRUGS (11)
  1. METOJECT (METHOTREXATE SODIUM)(SOLUTION) [Suspect]
     Indication: DERMATOMYOSITIS
     Dosage: 1.4286 MG (10 MG,1 IN 1 WK)
  2. FOSAMAX [Suspect]
     Dosage: 10 MG (70 MG,1 IN 1 WK), ORAL
     Route: 048
  3. CORTANCYL (PREDNISONE) [Suspect]
     Indication: DERMATOMYOSITIS
     Dosage: 70 MG (70 MG, 1 IN 1 D), ORAL
     Route: 048
     Dates: start: 20090701
  4. SPECIAFOLDINE (FOLIC ACID) [Suspect]
     Dosage: ORAL
     Route: 048
  5. FEMARA [Suspect]
     Indication: BREAST CANCER
     Dosage: (2.5 MG), ORAL
     Route: 048
  6. ZELITREX (VALACICLOVIR HYDROCHLORIDE) [Suspect]
     Dosage: ORAL
     Route: 048
  7. ESCITALOPRAM (ESCITALOPRAM OXALATE) (TABLETS) [Suspect]
     Indication: DEPRESSION
     Dosage: ORAL
     Route: 048
  8. PLAQUENIL [Suspect]
     Indication: DERMATOMYOSITIS
     Dosage: 400 MG (200 MG,2 IN 1 D), ORAL
     Route: 048
     Dates: start: 20090501, end: 20101010
  9. APROVEL (IRBESARTAN) [Suspect]
     Indication: HYPERTENSION
     Dosage: ORAL
     Route: 048
  10. INIPOMP (PANTOPRAZOLE) (TABLETS) [Suspect]
     Dosage: 40 MG (40 MG, 1IN 1 D), ORAL
     Route: 048
  11. CACIT D3 (CALCIUM, CHOLECALCIFEROL) [Suspect]
     Dosage: 1 DOSAGE FORM (1 DOSAGE FORMS, 1 IN 1 D), ORAL
     Route: 048

REACTIONS (1)
  - CATARACT [None]
